FAERS Safety Report 18995186 (Version 6)
Quarter: 2022Q1

REPORT INFORMATION
  Report Type: Spontaneous
  Country: US (occurrence: None)
  Receive Date: 20210311
  Receipt Date: 20220127
  Transmission Date: 20220424
  Serious: Yes (Other)
  Sender: FDA-Public Use
  Company Number: US-ROCHE-2754280

PATIENT
  Age: 54 Year
  Sex: Female

DRUGS (4)
  1. XELODA [Suspect]
     Active Substance: CAPECITABINE
     Indication: Product used for unknown indication
     Dosage: 1000MG BY MOUTH IN THE MORNING AND 500MG BY MOUTH IN THE EVENING X14 DAYS ON, THEN X7 DAYS OFF.
     Route: 065
  2. XELODA [Suspect]
     Active Substance: CAPECITABINE
     Dosage: 1000MG BY TWICE A DAY X14 DAYS ON, THEN X7 DAYS OFF
     Route: 065
  3. TUKYSA [Suspect]
     Active Substance: TUCATINIB
     Indication: Breast cancer female
     Route: 065
  4. CORTISONE [Suspect]
     Active Substance: CORTISONE
     Indication: Product used for unknown indication
     Route: 065

REACTIONS (19)
  - Cognitive disorder [Unknown]
  - Asthenia [Recovering/Resolving]
  - Diarrhoea [Recovering/Resolving]
  - Heart rate increased [Recovering/Resolving]
  - Nausea [Recovering/Resolving]
  - Feeling abnormal [Unknown]
  - White blood cell count abnormal [Unknown]
  - Palmar-plantar erythrodysaesthesia syndrome [Not Recovered/Not Resolved]
  - Lip blister [Recovering/Resolving]
  - Full blood count abnormal [Unknown]
  - Fatigue [Unknown]
  - Night sweats [Unknown]
  - Red blood cell count decreased [Unknown]
  - Platelet count decreased [Unknown]
  - Memory impairment [Unknown]
  - Intentional product misuse [Unknown]
  - Periarthritis [Unknown]
  - Exercise tolerance decreased [Unknown]
  - Fingerprint loss [Unknown]

NARRATIVE: CASE EVENT DATE: 20210203
